FAERS Safety Report 8975604 (Version 1)
Quarter: 2012Q4

REPORT INFORMATION
  Report Type: 
  Country: TR (occurrence: TR)
  Receive Date: 20121219
  Receipt Date: 20121219
  Transmission Date: 20130627
  Serious: Yes (Hospitalization)
  Sender: FDA-Public Use
  Company Number: TR-PFIZER INC-2012316698

PATIENT
  Age: 47 Year
  Sex: Male

DRUGS (3)
  1. DOCETAXEL [Suspect]
     Indication: METASTATIC GASTRIC CANCER
     Dosage: UNK
  2. CISPLATIN [Suspect]
     Indication: METASTATIC GASTRIC CANCER
     Dosage: UNK
  3. FLUOROURACIL [Suspect]
     Indication: METASTATIC GASTRIC CANCER
     Dosage: UNK

REACTIONS (4)
  - Hiccups [Recovered/Resolved]
  - Nausea [Unknown]
  - Fatigue [Unknown]
  - Sleep disorder [Recovered/Resolved]
